FAERS Safety Report 6542501-6 (Version None)
Quarter: 2010Q1

REPORT INFORMATION
  Report Type: 
  Country: None (occurrence: None)
  Receive Date: 20100119
  Receipt Date: 20100113
  Transmission Date: 20100710
  Serious: Yes (Other)
  Sender: FDA-Public Use
  Company Number: US-BAYER-201010513BCC

PATIENT
  Age: 65 Year
  Sex: Female
  Weight: 122 kg

DRUGS (11)
  1. ALEVE (CAPLET) [Suspect]
     Indication: ARTHRALGIA
     Dosage: TOTAL DAILY DOSE: 440 MG  UNIT DOSE: 220 MG
     Route: 048
     Dates: start: 20000101, end: 20100101
  2. PREVACID [Concomitant]
     Route: 065
  3. DYAZIDE [Concomitant]
     Route: 065
  4. GLYBURIDE [Concomitant]
     Route: 065
  5. CAPTOPRIL [Concomitant]
     Route: 065
  6. PLAVIX [Concomitant]
     Route: 065
  7. ATENOLOL [Concomitant]
     Route: 065
  8. SERTRALINE HCL [Concomitant]
     Route: 065
  9. ECOTRIN [Concomitant]
     Route: 065
  10. VICODIN [Concomitant]
     Route: 065
  11. VALIUM [Concomitant]
     Route: 065

REACTIONS (3)
  - APHASIA [None]
  - DRY MOUTH [None]
  - SWOLLEN TONGUE [None]
